FAERS Safety Report 8956973 (Version 1)
Quarter: 2012Q4

REPORT INFORMATION
  Report Type: 
  Country: UA (occurrence: UA)
  Receive Date: 20121211
  Receipt Date: 20121211
  Transmission Date: 20130627
  Serious: Yes (Hospitalization)
  Sender: FDA-Public Use
  Company Number: UA-PFIZER INC-2012307617

PATIENT
  Age: 59 Year
  Sex: Male

DRUGS (1)
  1. SUTENT [Suspect]
     Indication: METASTATIC RENAL CELL CARCINOMA
     Dosage: 50 mg, 1x/day (prescribed per scheme ^4/2^)
     Route: 048
     Dates: start: 20121102, end: 20121129

REACTIONS (3)
  - Jaundice [Not Recovered/Not Resolved]
  - Gingival pain [Not Recovered/Not Resolved]
  - Periorbital oedema [Not Recovered/Not Resolved]
